FAERS Safety Report 9788653 (Version 1)
Quarter: 2013Q4

REPORT INFORMATION
  Report Type: Spontaneous
  Country: AU (occurrence: AU)
  Receive Date: 20131230
  Receipt Date: 20131230
  Transmission Date: 20140711
  Serious: Yes (Hospitalization)
  Sender: FDA-Public Use
  Company Number: PHHY2013AU152284

PATIENT
  Sex: 0

DRUGS (11)
  1. ATORVASTATIN [Suspect]
     Indication: HYPERLIPIDAEMIA
     Dosage: 40 MG, DAILY
  2. PREGABALIN [Suspect]
     Indication: TRIGEMINAL NEURALGIA
     Dosage: 75 MG, BID
  3. FUROSEMIDE [Suspect]
  4. SPIRONOLACTONE [Suspect]
  5. IRBESARTAN [Suspect]
  6. ASPIRIN [Concomitant]
  7. SODIUM VALPROATE [Concomitant]
  8. VENLAFAXINE [Concomitant]
  9. OXYCODONE [Concomitant]
  10. PARACETAMOL [Concomitant]
  11. BUDESONIDE W/FORMOTEROL FUMARATE [Concomitant]

REACTIONS (14)
  - Rhabdomyolysis [Unknown]
  - Myositis [Unknown]
  - Myalgia [Unknown]
  - Muscular weakness [Recovering/Resolving]
  - Gait disturbance [Unknown]
  - Ankle fracture [Unknown]
  - Fall [Unknown]
  - Oedema peripheral [Unknown]
  - Joint dislocation [Unknown]
  - Lower limb fracture [Unknown]
  - Oliguria [Recovering/Resolving]
  - Myoglobinuria [Recovering/Resolving]
  - Renal failure acute [Recovering/Resolving]
  - Leukocytosis [Unknown]
